FAERS Safety Report 5144680-4 (Version None)
Quarter: 2006Q4

REPORT INFORMATION
  Report Type: 
  Country: None (occurrence: None)
  Receive Date: 20061031
  Receipt Date: 20061025
  Transmission Date: 20070319
  Serious: Yes (Death)
  Sender: FDA-Public Use
  Company Number: 2006SP004996

PATIENT
  Age: 50 Year
  Sex: Male

DRUGS (1)
  1. TEMODAR [Suspect]
     Indication: MALIGNANT MELANOMA
     Dosage: 75 MG QD PO
     Route: 048

REACTIONS (1)
  - DEATH [None]
